FAERS Safety Report 10195691 (Version 1)
Quarter: 2014Q2

REPORT INFORMATION
  Report Type: Spontaneous
  Country: US (occurrence: US)
  Receive Date: 20140527
  Receipt Date: 20140527
  Transmission Date: 20141212
  Serious: No
  Sender: FDA-Public Use
  Company Number: US-B.I. PHARMACEUTICALS,INC./RIDGEFIELD-2014-BI-21737BP

PATIENT
  Age: 71 Year
  Sex: Female

DRUGS (3)
  1. MICARDIS HCT [Suspect]
     Indication: HYPERTENSION
     Dosage: DOSE PER APPLICATION:  80 MG PER  12.5 MG; DAILY DOSE: 80 MG PER 12.5 MG
     Route: 048
     Dates: start: 2012
  2. METOPROLOL [Concomitant]
     Indication: HYPERTENSION
     Dosage: 250 MG
     Route: 048
  3. PREMARIN [Concomitant]
     Indication: HORMONE REPLACEMENT THERAPY
     Dosage: 0.625 MG
     Route: 048

REACTIONS (2)
  - Tinnitus [Not Recovered/Not Resolved]
  - Vision blurred [Not Recovered/Not Resolved]
